FAERS Safety Report 8597127-X (Version None)
Quarter: 2012Q3

REPORT INFORMATION
  Report Type: 
  Country: None (occurrence: None)
  Receive Date: 20120816
  Receipt Date: 20120807
  Transmission Date: 20120928
  Serious: No
  Sender: FDA-Public Use
  Company Number: US-BIOGENIDEC-2012BI030090

PATIENT
  Sex: Female

DRUGS (2)
  1. TYSABRI [Suspect]
     Indication: MULTIPLE SCLEROSIS
     Route: 042
     Dates: start: 20080229, end: 20100326
  2. TYSABRI [Suspect]
     Route: 042
     Dates: start: 20101018

REACTIONS (6)
  - OEDEMA PERIPHERAL [None]
  - ASTHMA [None]
  - MICTURITION URGENCY [None]
  - WEIGHT INCREASED [None]
  - BODY MASS INDEX INCREASED [None]
  - POLLAKIURIA [None]
